FAERS Safety Report 11874212 (Version 1)
Quarter: 2015Q4

REPORT INFORMATION
  Report Type: Other
  Country: IN (occurrence: IN)
  Receive Date: 20151229
  Receipt Date: 20151229
  Transmission Date: 20160305
  Serious: No
  Sender: FDA-Public Use
  Company Number: IN-LUPIN PHARMACEUTICALS INC.-2015-03265

PATIENT
  Age: 71 Year
  Sex: Female

DRUGS (7)
  1. WARFARIN [Concomitant]
     Active Substance: WARFARIN
     Indication: SUPRAVENTRICULAR TACHYCARDIA
  2. BISOPROLOL [Concomitant]
     Active Substance: BISOPROLOL
     Indication: ATRIAL FIBRILLATION
     Route: 065
  3. CLONAZEPAM. [Concomitant]
     Active Substance: CLONAZEPAM
     Indication: PRODUCT USED FOR UNKNOWN INDICATION
     Dosage: 0.75 MG
     Route: 065
  4. ESCITALOPRAM [Suspect]
     Active Substance: ESCITALOPRAM OXALATE
     Indication: PRODUCT USED FOR UNKNOWN INDICATION
     Dosage: 10 MG
     Route: 065
  5. WARFARIN [Concomitant]
     Active Substance: WARFARIN
     Indication: ATRIAL FIBRILLATION
     Route: 065
  6. CLONAZEPAM. [Concomitant]
     Active Substance: CLONAZEPAM
     Dosage: 0.5 MG
     Route: 065
  7. BISOPROLOL [Concomitant]
     Active Substance: BISOPROLOL
     Indication: SUPRAVENTRICULAR TACHYCARDIA

REACTIONS (1)
  - Oedema peripheral [Recovered/Resolved]
